FAERS Safety Report 5201432-4 (Version None)
Quarter: 2007Q1

REPORT INFORMATION
  Report Type: 
  Country: None (occurrence: None)
  Receive Date: 20070108
  Receipt Date: 20061227
  Transmission Date: 20070707
  Serious: Yes (Hospitalization, Other)
  Sender: FDA-Public Use
  Company Number: US-PFIZER INC-2007000067

PATIENT
  Sex: Male
  Weight: 136.1 kg

DRUGS (2)
  1. BEXTRA [Suspect]
     Indication: INTERVERTEBRAL DISC DEGENERATION
     Dates: start: 20020901, end: 20041201
  2. ULTRAM [Concomitant]

REACTIONS (5)
  - ANGINA PECTORIS [None]
  - CARDIAC FAILURE [None]
  - CARDIAC FAILURE CONGESTIVE [None]
  - CORONARY ARTERY DISEASE [None]
  - MYOCARDIAL INFARCTION [None]
